FAERS Safety Report 8783802 (Version 1)
Quarter: 2012Q4

REPORT INFORMATION
  Report Type: Spontaneous
  Country: US (occurrence: None)
  Receive Date: 20120906
  Receipt Date: 20120906
  Transmission Date: 20130627
  Serious: Yes (Hospitalization, Other)
  Sender: FDA-Public Use
  Company Number: None

PATIENT
  Age: 79 Year
  Sex: Female
  Weight: 70.76 kg

DRUGS (1)
  1. ABILIFY [Suspect]
     Indication: DEPRESSION
     Route: 048
     Dates: start: 20120101, end: 20120903

REACTIONS (10)
  - Neuroleptic malignant syndrome [None]
  - Extrapyramidal disorder [None]
  - Parkinsonism [None]
  - Delusion [None]
  - Mood altered [None]
  - Dysphagia [None]
  - Headache [None]
  - Insomnia [None]
  - Abnormal behaviour [None]
  - Seizure like phenomena [None]
